FAERS Safety Report 18498088 (Version 1)
Quarter: 2020Q4

REPORT INFORMATION
  Report Type: Spontaneous
  Country: ES (occurrence: ES)
  Receive Date: 20201112
  Receipt Date: 20201112
  Transmission Date: 20210114
  Serious: Yes (Other)
  Sender: FDA-Public Use
  Company Number: ES-MYLANLABS-2020M1093581

PATIENT
  Age: 70 Year
  Sex: Male
  Weight: 78 kg

DRUGS (3)
  1. TAMSULOSINA MYLAN 0,4 MG C?PSULAS DURAS DE LIBERACI?N MODIFICADA EFG [Suspect]
     Active Substance: TAMSULOSIN HYDROCHLORIDE
     Indication: PROSTATIC SPECIFIC ANTIGEN INCREASED
     Dosage: ONE TABLET AFTER LUNCH
     Route: 048
     Dates: start: 20201010, end: 20201010
  2. ENALAPRIL [Concomitant]
     Active Substance: ENALAPRIL
     Indication: HYPERTENSION
     Dosage: ONE IN THE MORNING AND A HALF AT NIGHT
     Route: 048
     Dates: start: 20141018
  3. SIMVASTATIN. [Concomitant]
     Active Substance: SIMVASTATIN
     Indication: HYPERCHOLESTEROLAEMIA
     Dosage: ONE AT NIGHT
     Route: 048
     Dates: start: 20151015

REACTIONS (3)
  - Hyperhidrosis [Recovered/Resolved]
  - Orthostatic hypotension [Recovered/Resolved]
  - Dizziness [Recovered/Resolved]

NARRATIVE: CASE EVENT DATE: 20201010
